FAERS Safety Report 9113768 (Version 1)
Quarter: 2013Q1

REPORT INFORMATION
  Report Type: Report from Study
  Country: US (occurrence: US)
  Receive Date: 20130129
  Receipt Date: 20130129
  Transmission Date: 20140127
  Serious: Yes (Hospitalization)
  Sender: FDA-Public Use
  Company Number: US-ABBOTT-12P-163-0939450-00

PATIENT
  Age: 59 Year
  Sex: Male
  Weight: 100.79 kg

DRUGS (2)
  1. HUMIRA 40 MG/0.8 ML PEN [Suspect]
     Indication: RHEUMATOID ARTHRITIS
     Dates: start: 201202, end: 20120319
  2. PROPECIA [Concomitant]
     Indication: ALOPECIA

REACTIONS (1)
  - Pulmonary embolism [Recovering/Resolving]
